FAERS Safety Report 8183370-0 (Version None)
Quarter: 2012Q1

REPORT INFORMATION
  Report Type: 
  Country: None (occurrence: None)
  Receive Date: 20120305
  Receipt Date: 20120228
  Transmission Date: 20120608
  Serious: Yes (Death, Hospitalization)
  Sender: FDA-Public Use
  Company Number: US-US-EMD SERONO, INC.-7115849

PATIENT
  Sex: Male

DRUGS (2)
  1. LITHIUM CARBONATE [Concomitant]
     Indication: BIPOLAR DISORDER
     Dates: end: 20120117
  2. EGRIFTA [Suspect]
     Indication: LIPODYSTROPHY ACQUIRED
     Route: 058
     Dates: start: 20110301, end: 20120117

REACTIONS (5)
  - ARRHYTHMIA [None]
  - INJECTION SITE HAEMORRHAGE [None]
  - CARDIOMYOPATHY [None]
  - INJECTION SITE REACTION [None]
  - DRUG LEVEL CHANGED [None]
